FAERS Safety Report 7817029-3 (Version None)
Quarter: 2011Q4

REPORT INFORMATION
  Report Type: 
  Country: None (occurrence: None)
  Receive Date: 20111014
  Receipt Date: 20111014
  Transmission Date: 20120403
  Serious: No
  Sender: FDA-Public Use
  Company Number: None

PATIENT
  Sex: Female
  Weight: 113.6 kg

DRUGS (1)
  1. HUMALOG [Suspect]
     Indication: DIABETES MELLITUS
     Dosage: 10-12 UNITS T.I.D. SUBCUTANEOUS
     Route: 058
     Dates: start: 20110730, end: 20110830

REACTIONS (2)
  - BLOOD GLUCOSE ABNORMAL [None]
  - PRODUCT QUALITY ISSUE [None]
